FAERS Safety Report 11743588 (Version 1)
Quarter: 2015Q4

REPORT INFORMATION
  Report Type: Spontaneous
  Country: GR (occurrence: GR)
  Receive Date: 20151116
  Receipt Date: 20151116
  Transmission Date: 20160304
  Serious: Yes (Hospitalization)
  Sender: FDA-Public Use
  Company Number: GR-GLAXOSMITHKLINE-GR2015GSK160638

PATIENT
  Age: 12 Year
  Sex: Male

DRUGS (3)
  1. CLARIPEN [Suspect]
     Active Substance: CLARITHROMYCIN
     Indication: ASTHMA
     Dosage: UNK
     Dates: start: 20151012, end: 20151022
  2. MEDROL [Suspect]
     Active Substance: METHYLPREDNISOLONE
     Indication: ASTHMA
     Dosage: UNK
     Dates: start: 20151012, end: 20151022
  3. AEROLIN [Suspect]
     Active Substance: ALBUTEROL
     Indication: ASTHMA
     Dosage: UNK UNK, PRN
     Route: 055

REACTIONS (2)
  - Tachycardia [Recovered/Resolved]
  - Asthma [Recovered/Resolved]

NARRATIVE: CASE EVENT DATE: 20151012
